FAERS Safety Report 19530587 (Version 3)
Quarter: 2021Q3

REPORT INFORMATION
  Report Type: Spontaneous
  Country: JP (occurrence: JP)
  Receive Date: 20210713
  Receipt Date: 20210809
  Transmission Date: 20211014
  Serious: Yes (Death, Life-Threatening, Other)
  Sender: FDA-Public Use
  Company Number: JP-CELGENEUS-JPN-20210701060

PATIENT
  Age: 76 Year
  Sex: Female
  Weight: 44.3 kg

DRUGS (7)
  1. CEFTRIAXONE. [Concomitant]
     Active Substance: CEFTRIAXONE
     Indication: CHOLANGITIS
     Dosage: 2 GRAM
     Route: 041
     Dates: start: 20210626, end: 20210628
  2. ZOSYN [Concomitant]
     Active Substance: PIPERACILLIN SODIUM\TAZOBACTAM SODIUM
     Indication: CHOLANGITIS
     Dosage: 9 GRAM
     Route: 041
     Dates: start: 20210628, end: 20210701
  3. ABRAXANE [Suspect]
     Active Substance: PACLITAXEL
     Indication: PANCREATIC CARCINOMA
     Route: 041
     Dates: start: 20210625, end: 20210626
  4. TEICOPLANIN [Concomitant]
     Active Substance: TEICOPLANIN
     Indication: CHOLANGITIS
     Dosage: 400 MILLIGRAM
     Route: 041
     Dates: start: 20210628, end: 20210701
  5. VICCILLIN [Concomitant]
     Active Substance: AMPICILLIN
     Indication: MULTIPLE ORGAN DYSFUNCTION SYNDROME
     Dosage: 2 GRAM
     Route: 041
     Dates: start: 20210701, end: 20210705
  6. OMEGACIN [Concomitant]
     Active Substance: BIAPENEM
     Indication: MULTIPLE ORGAN DYSFUNCTION SYNDROME
     Dosage: .6 GRAM
     Route: 041
     Dates: start: 20210701, end: 20210705
  7. GEMCITABINE. [Concomitant]
     Active Substance: GEMCITABINE
     Indication: PANCREATIC CARCINOMA
     Dosage: 1300 MILLIGRAM
     Route: 065
     Dates: start: 20210625, end: 20210626

REACTIONS (5)
  - Haematotoxicity [Fatal]
  - Cerebral infarction [Fatal]
  - Cholangitis infective [Fatal]
  - Disseminated intravascular coagulation [Fatal]
  - Atrial fibrillation [Not Recovered/Not Resolved]

NARRATIVE: CASE EVENT DATE: 20210628
